FAERS Safety Report 10145956 (Version 2)
Quarter: 2014Q2

REPORT INFORMATION
  Report Type: Spontaneous
  Country: US (occurrence: None)
  Receive Date: 20140429
  Receipt Date: 20140519
  Transmission Date: 20141212
  Serious: Yes (Hospitalization)
  Sender: FDA-Public Use
  Company Number: AUR-APL-2014-04958

PATIENT
  Age: 57 Year
  Sex: Male

DRUGS (4)
  1. AMPICILLIN [Suspect]
     Indication: ENTEROCOCCAL INFECTION
  2. GENTAMICIN [Suspect]
     Indication: STAPHYLOCOCCAL INFECTION
  3. VANCOMYCIN (VANCOMYCIN) [Concomitant]
  4. DALFOPRISTIN W/QUINUPRISTIN (DALFOPRISTIN W/QUINUPRISTIN) [Concomitant]

REACTIONS (4)
  - Renal failure acute [None]
  - Tubulointerstitial nephritis [None]
  - Nephritis allergic [None]
  - Renal failure acute [None]
